FAERS Safety Report 6129681-1 (Version None)
Quarter: 2009Q1

REPORT INFORMATION
  Report Type: 
  Country: None (occurrence: None)
  Receive Date: 20090323
  Receipt Date: 20090323
  Transmission Date: 20090719
  Serious: Yes (Other)
  Sender: FDA-Public Use
  Company Number: None

PATIENT
  Age: 26 Year
  Sex: Female
  Weight: 58.9676 kg

DRUGS (4)
  1. SINGULAIR [Suspect]
     Indication: ASTHMA
     Dosage: 10MG 1 TIME A DAY PO
     Route: 048
     Dates: start: 20080210, end: 20080224
  2. SINGULAIR [Suspect]
     Indication: HYPERSENSITIVITY
     Dosage: 10MG 1 TIME A DAY PO
     Route: 048
     Dates: start: 20080210, end: 20080224
  3. SINGULAIR [Suspect]
     Indication: ASTHMA
     Dosage: 5MG CHEWABLE 1 TIME A DAY PO
     Route: 048
     Dates: start: 20090316, end: 20090317
  4. SINGULAIR [Suspect]
     Indication: HYPERSENSITIVITY
     Dosage: 5MG CHEWABLE 1 TIME A DAY PO
     Route: 048
     Dates: start: 20090316, end: 20090317

REACTIONS (3)
  - ANXIETY [None]
  - INSOMNIA [None]
  - NIGHTMARE [None]
